FAERS Safety Report 5750164-2 (Version None)
Quarter: 2008Q2

REPORT INFORMATION
  Report Type: 
  Country: None (occurrence: None)
  Receive Date: 20080527
  Receipt Date: 20080515
  Transmission Date: 20081010
  Serious: Yes (Other)
  Sender: FDA-Public Use
  Company Number: US-PFIZER INC-2008042120

PATIENT
  Sex: Female
  Weight: 59 kg

DRUGS (10)
  1. DEPO-ESTRADIOL SOLUTION, STERILE [Suspect]
     Route: 042
  2. PLAVIX [Concomitant]
  3. NEXIUM [Concomitant]
  4. LOPRESSOR [Concomitant]
  5. NICODERM [Concomitant]
  6. OXYCONTIN [Concomitant]
  7. MIRALAX [Concomitant]
  8. ZOLOFT [Concomitant]
  9. COUMADIN [Concomitant]
  10. HEPARIN [Concomitant]
     Route: 042

REACTIONS (5)
  - ABDOMINAL PAIN [None]
  - ATAXIA [None]
  - INCORRECT ROUTE OF DRUG ADMINISTRATION [None]
  - MENOPAUSAL SYMPTOMS [None]
  - NAUSEA [None]
